FAERS Safety Report 9305988 (Version 1)
Quarter: 2013Q2

REPORT INFORMATION
  Report Type: Spontaneous
  Country: GB (occurrence: GB)
  Receive Date: 20130523
  Receipt Date: 20130523
  Transmission Date: 20140414
  Serious: Yes (Other)
  Sender: FDA-Public Use
  Company Number: PHHY2013GB048955

PATIENT
  Age: 26 Year
  Sex: 0

DRUGS (1)
  1. SERTRALINE [Suspect]
     Indication: ANXIETY
     Dosage: 150 MG, UNK
     Route: 048
     Dates: start: 20130417, end: 20130429

REACTIONS (3)
  - Pain in jaw [Recovered/Resolved]
  - Joint stiffness [Recovered/Resolved]
  - Bruxism [Recovered/Resolved]
